FAERS Safety Report 9803054 (Version 3)
Quarter: 2014Q1

REPORT INFORMATION
  Report Type: Spontaneous
  Country: JP (occurrence: JP)
  Receive Date: 20140108
  Receipt Date: 20140217
  Transmission Date: 20141002
  Serious: Yes (Other)
  Sender: FDA-Public Use
  Company Number: JP-JNJFOC-20140102470

PATIENT
  Age: 84 Year
  Sex: Male

DRUGS (14)
  1. XARELTO [Suspect]
     Indication: CEREBROVASCULAR ACCIDENT PROPHYLAXIS
     Route: 048
     Dates: start: 20140106
  2. XARELTO [Suspect]
     Indication: CEREBROVASCULAR ACCIDENT PROPHYLAXIS
     Route: 048
     Dates: start: 20140103, end: 20140106
  3. XARELTO [Suspect]
     Indication: ATRIAL FIBRILLATION
     Route: 048
     Dates: start: 20140106
  4. XARELTO [Suspect]
     Indication: ATRIAL FIBRILLATION
     Route: 048
     Dates: start: 20140103, end: 20140106
  5. SERENACE [Concomitant]
     Indication: RESTLESSNESS
     Route: 042
     Dates: start: 20140101
  6. INDERAL [Concomitant]
     Indication: ANGINA PECTORIS
     Route: 048
     Dates: start: 20140106
  7. INDERAL [Concomitant]
     Indication: ANGINA PECTORIS
     Route: 048
     Dates: start: 20140103, end: 20140106
  8. INDERAL [Concomitant]
     Indication: ARRHYTHMIA
     Route: 048
     Dates: start: 20140106
  9. INDERAL [Concomitant]
     Indication: ARRHYTHMIA
     Route: 048
     Dates: start: 20140103, end: 20140106
  10. DILTIAZEM HYDROCHLORIDE [Concomitant]
     Indication: TACHYCARDIA
     Route: 041
     Dates: start: 20140101, end: 20140103
  11. DILTIAZEM HYDROCHLORIDE [Concomitant]
     Indication: ATRIAL FIBRILLATION
     Route: 041
     Dates: start: 20140101, end: 20140103
  12. CEFTRIAXONE SODIUM [Concomitant]
     Indication: PNEUMONIA
     Route: 042
     Dates: start: 20131231, end: 20140105
  13. VASOLAN [Concomitant]
     Indication: TACHYCARDIA
     Route: 041
     Dates: start: 20140101, end: 20140103
  14. VASOLAN [Concomitant]
     Indication: ATRIAL FIBRILLATION
     Route: 041
     Dates: start: 20140101, end: 20140103

REACTIONS (2)
  - Electrocardiogram QT prolonged [Recovered/Resolved]
  - Ventricular extrasystoles [Unknown]
